FAERS Safety Report 9736256 (Version 3)
Quarter: 2014Q4

REPORT INFORMATION
  Report Type: Report from Study
  Country: FR (occurrence: FR)
  Receive Date: 20131206
  Receipt Date: 20141008
  Transmission Date: 20150529
  Serious: Yes (Other)
  Sender: FDA-Public Use
  Company Number: FR-ROCHE-1311696

PATIENT
  Age: 13 Year
  Sex: Female
  Weight: 79 kg

DRUGS (5)
  1. SOMATROPIN [Suspect]
     Active Substance: SOMATROPIN
     Route: 058
     Dates: start: 20120919, end: 20121210
  2. SOMATROPIN [Suspect]
     Active Substance: SOMATROPIN
     Indication: SILVER-RUSSELL SYNDROME
     Route: 058
     Dates: start: 20120524, end: 20120918
  3. SOMATROPIN [Suspect]
     Active Substance: SOMATROPIN
     Route: 058
     Dates: start: 20130704, end: 20130911
  4. SOMATROPIN [Suspect]
     Active Substance: SOMATROPIN
     Route: 058
     Dates: start: 20121211, end: 20130703
  5. LEVOTHYROX [Concomitant]
     Active Substance: LEVOTHYROXINE
     Route: 065
     Dates: start: 2011

REACTIONS (2)
  - Neoplasm progression [Recovered/Resolved with Sequelae]
  - Off label use [Unknown]

NARRATIVE: CASE EVENT DATE: 201309
